FAERS Safety Report 19724132 (Version 2)
Quarter: 2021Q3

REPORT INFORMATION
  Report Type: Spontaneous
  Country: US (occurrence: US)
  Receive Date: 20210819
  Receipt Date: 20210826
  Transmission Date: 20211014
  Serious: Yes (Other)
  Sender: FDA-Public Use
  Company Number: US-TEVA-2021-US-1942395

PATIENT

DRUGS (2)
  1. MEMANTINE. [Suspect]
     Active Substance: MEMANTINE
     Indication: HEADACHE
     Dosage: 5 MILLIGRAM DAILY; INITIAL DOSE
     Route: 065
  2. MEMANTINE. [Suspect]
     Active Substance: MEMANTINE
     Dosage: 20 MILLIGRAM DAILY; DOSE INCREASED BY 5MG/WEEK
     Route: 065

REACTIONS (2)
  - Off label use [Unknown]
  - Depressed level of consciousness [Unknown]
